FAERS Safety Report 7019902-5 (Version None)
Quarter: 2010Q3

REPORT INFORMATION
  Report Type: 
  Country: None (occurrence: None)
  Receive Date: 20100929
  Receipt Date: 20100323
  Transmission Date: 20110219
  Serious: Yes (Hospitalization)
  Sender: FDA-Public Use
  Company Number: US-BAYER-201014094NA

PATIENT
  Age: 39 Year
  Sex: Female
  Weight: 59 kg

DRUGS (5)
  1. YAZ [Suspect]
     Indication: PRODUCT USED FOR UNKNOWN INDICATION
     Route: 048
     Dates: start: 20050101, end: 20071001
  2. ADVIL LIQUI-GELS [Concomitant]
  3. ALEVE (CAPLET) [Concomitant]
  4. ASTHMA DRUGS [Concomitant]
  5. MIGRAINE DRUG [Concomitant]

REACTIONS (5)
  - ABDOMINAL PAIN UPPER [None]
  - CHOLECYSTITIS CHRONIC [None]
  - CHOLELITHIASIS [None]
  - NAUSEA [None]
  - WEIGHT DECREASED [None]
